FAERS Safety Report 4703484-4 (Version None)
Quarter: 2005Q2

REPORT INFORMATION
  Report Type: 
  Country: None (occurrence: None)
  Receive Date: 20050624
  Receipt Date: 20050307
  Transmission Date: 20051028
  Serious: No
  Sender: FDA-Public Use
  Company Number: 2005BI003832

PATIENT
  Age: 32 Year
  Sex: Female

DRUGS (1)
  1. NATALIZUMAB [Suspect]
     Indication: MULTIPLE SCLEROSIS
     Dosage: 300 MG; QM; IV
     Route: 042
     Dates: start: 20041221, end: 20041201

REACTIONS (9)
  - DIARRHOEA [None]
  - DIZZINESS [None]
  - INFLUENZA LIKE ILLNESS [None]
  - MYALGIA [None]
  - PAIN [None]
  - PYREXIA [None]
  - TREMOR [None]
  - VOMITING [None]
  - WEIGHT DECREASED [None]
